FAERS Safety Report 7521223-9 (Version None)
Quarter: 2011Q2

REPORT INFORMATION
  Report Type: 
  Country: None (occurrence: None)
  Receive Date: 20110524
  Receipt Date: 20110511
  Transmission Date: 20111010
  Serious: Yes (Death)
  Sender: FDA-Public Use
  Company Number: JPI-P-014775

PATIENT
  Age: 69 Year
  Sex: Female

DRUGS (5)
  1. XYREM [Suspect]
     Indication: PRODUCT USED FOR UNKNOWN INDICATION
     Dosage: 45GM (2.25 GM, 2 IN  1 D),ORAL, 6 GM (3 GM,2 IN 1 D),ORAL,7.5 GM (3.75 GM,2 IN 1 D),ORAL
     Route: 048
     Dates: start: 20060428, end: 20070803
  2. XYREM [Suspect]
     Indication: PRODUCT USED FOR UNKNOWN INDICATION
     Dosage: 45GM (2.25 GM, 2 IN  1 D),ORAL, 6 GM (3 GM,2 IN 1 D),ORAL,7.5 GM (3.75 GM,2 IN 1 D),ORAL
     Route: 048
     Dates: start: 20050607, end: 20051101
  3. XYREM [Suspect]
     Indication: PRODUCT USED FOR UNKNOWN INDICATION
     Dosage: 45GM (2.25 GM, 2 IN  1 D),ORAL, 6 GM (3 GM,2 IN 1 D),ORAL,7.5 GM (3.75 GM,2 IN 1 D),ORAL
     Route: 048
     Dates: start: 20060118, end: 20060301
  4. XYREM [Suspect]
     Indication: PRODUCT USED FOR UNKNOWN INDICATION
     Dosage: 45GM (2.25 GM, 2 IN  1 D),ORAL, 6 GM (3 GM,2 IN 1 D),ORAL,7.5 GM (3.75 GM,2 IN 1 D),ORAL
     Route: 048
     Dates: start: 20060309, end: 20060401
  5. XYREM [Suspect]
     Indication: PRODUCT USED FOR UNKNOWN INDICATION
     Dosage: 45GM (2.25 GM, 2 IN  1 D),ORAL, 6 GM (3 GM,2 IN 1 D),ORAL,7.5 GM (3.75 GM,2 IN 1 D),ORAL
     Route: 048
     Dates: start: 20051117, end: 20060101

REACTIONS (1)
  - DEATH [None]
